FAERS Safety Report 24717526 (Version 1)
Quarter: 2024Q4

REPORT INFORMATION
  Report Type: Spontaneous
  Country: US (occurrence: US)
  Receive Date: 20241210
  Receipt Date: 20241210
  Transmission Date: 20250115
  Serious: No
  Sender: BLUEPRINT MEDICINES
  Company Number: US-Blueprint Medicines Corporation-5552

PATIENT
  Age: 71 Year
  Sex: Female

DRUGS (1)
  1. AYVAKIT [Suspect]
     Active Substance: AVAPRITINIB
     Indication: Haematopoietic neoplasm
     Route: 065

REACTIONS (6)
  - Pruritus [Unknown]
  - Rash [Unknown]
  - Dermatitis [Unknown]
  - Sinus disorder [Unknown]
  - Sinus pain [Unknown]
  - Cough [Unknown]
